FAERS Safety Report 6984024-6 (Version None)
Quarter: 2010Q3

REPORT INFORMATION
  Report Type: 
  Country: None (occurrence: None)
  Receive Date: 20100915
  Receipt Date: 20090513
  Transmission Date: 20110219
  Serious: No
  Sender: FDA-Public Use
  Company Number: US-WYE-H09359209

PATIENT
  Sex: Female
  Weight: 61.29 kg

DRUGS (3)
  1. PRISTIQ [Suspect]
     Indication: MAJOR DEPRESSION
     Route: 048
     Dates: start: 20090301, end: 20090101
  2. PRISTIQ [Suspect]
     Dosage: RESTARTED AT UNKNOWN DOSE
     Dates: start: 20090101
  3. STRATTERA [Suspect]
     Dosage: UNKNOWN

REACTIONS (5)
  - CRYING [None]
  - DEPRESSED MOOD [None]
  - DISTURBANCE IN ATTENTION [None]
  - DRUG WITHDRAWAL SYNDROME [None]
  - UNEVALUABLE EVENT [None]
